FAERS Safety Report 7797169-8 (Version None)
Quarter: 2011Q4

REPORT INFORMATION
  Report Type: 
  Country: None (occurrence: None)
  Receive Date: 20111003
  Receipt Date: 20110928
  Transmission Date: 20120403
  Serious: Yes (Life-Threatening, Hospitalization, Other)
  Sender: FDA-Public Use
  Company Number: 2010SP026025

PATIENT
  Age: 29 Year
  Sex: Female
  Weight: 81.6475 kg

DRUGS (5)
  1. BLOOD THINNERS [Suspect]
     Indication: PULMONARY EMBOLISM
  2. DARVOCET [Concomitant]
  3. NUVARING [Suspect]
     Indication: CONTRACEPTION
     Dosage: VAG
     Route: 067
     Dates: start: 20051101
  4. NUVARING [Suspect]
     Indication: CONTRACEPTION
     Dosage: VAG
     Route: 067
     Dates: start: 20040101, end: 20080101
  5. VALIUM [Concomitant]

REACTIONS (24)
  - PULMONARY EMBOLISM [None]
  - DYSPNOEA [None]
  - OVARIAN CYST [None]
  - PLEURAL EFFUSION [None]
  - ANXIETY [None]
  - VULVOVAGINAL MYCOTIC INFECTION [None]
  - ATELECTASIS [None]
  - INTRA-UTERINE DEATH [None]
  - MATERNAL EXPOSURE BEFORE PREGNANCY [None]
  - MATERNAL EXPOSURE DURING PREGNANCY [None]
  - ABORTION SPONTANEOUS [None]
  - PLEURITIC PAIN [None]
  - CARDIOMEGALY [None]
  - POST STROKE DEPRESSION [None]
  - ABORTION THREATENED [None]
  - PYREXIA [None]
  - PULMONARY INFARCTION [None]
  - LEUKOCYTOSIS [None]
  - ANAEMIA [None]
  - ABORTION MISSED [None]
  - HIATUS HERNIA [None]
  - PNEUMONIA [None]
  - UTERINE LEIOMYOMA [None]
  - URINARY TRACT INFECTION [None]
